FAERS Safety Report 4765597-0 (Version None)
Quarter: 2005Q3

REPORT INFORMATION
  Report Type: 
  Country: None (occurrence: None)
  Receive Date: 20050906
  Receipt Date: 20050824
  Transmission Date: 20060218
  Serious: Yes (Other)
  Sender: FDA-Public Use
  Company Number: 2005120946

PATIENT
  Age: 55 Year
  Sex: Male

DRUGS (4)
  1. CABERGOLINE [Suspect]
     Indication: PARKINSON'S DISEASE
     Dosage: 6 MG (DAILY INTERVAL: EVERY DAY) ORAL
     Route: 048
     Dates: start: 20021201, end: 20050701
  2. SINEMET [Concomitant]
  3. STALEVO (CARBIDOPA, ENTACAPONE, LEVODOPA) [Concomitant]
  4. BESITRAN [Concomitant]

REACTIONS (3)
  - AORTIC VALVE INCOMPETENCE [None]
  - MITRAL VALVE INCOMPETENCE [None]
  - PULMONARY HYPERTENSION [None]
